FAERS Safety Report 12633086 (Version 2)
Quarter: 2016Q3

REPORT INFORMATION
  Report Type: Spontaneous
  Country: US (occurrence: US)
  Receive Date: 20160808
  Receipt Date: 20160808
  Transmission Date: 20161109
  Serious: No
  Sender: FDA-Public Use
  Company Number: US-BEH-2016058405

PATIENT
  Sex: Male
  Weight: 67 kg

DRUGS (11)
  1. VITAMIN B12 [Concomitant]
     Active Substance: CYANOCOBALAMIN
  2. HIZENTRA [Suspect]
     Active Substance: HUMAN IMMUNOGLOBULIN G
     Indication: COMBINED IMMUNODEFICIENCY
     Route: 058
     Dates: start: 20120511
  3. SUDAFED 12-HOUR [Concomitant]
     Dosage: SA
  4. ELIDEL [Concomitant]
     Active Substance: PIMECROLIMUS
  5. OMEPRAZOLE DR [Concomitant]
     Active Substance: OMEPRAZOLE
  6. LIDOCAINE/PRILOCAINE [Concomitant]
     Active Substance: LIDOCAINE\PRILOCAINE
  7. DOVONEX [Concomitant]
     Active Substance: CALCIPOTRIENE
  8. ACETAMINOPHEN. [Concomitant]
     Active Substance: ACETAMINOPHEN
  9. DIPHENHYDRAMINE. [Concomitant]
     Active Substance: DIPHENHYDRAMINE
  10. EPI-PEN AUTOINJECTOR [Concomitant]
  11. RANITIDINE. [Concomitant]
     Active Substance: RANITIDINE

REACTIONS (1)
  - Nasopharyngitis [Unknown]
